FAERS Safety Report 21985429 (Version 1)
Quarter: 2023Q1

REPORT INFORMATION
  Report Type: Report from Study
  Country: US (occurrence: US)
  Receive Date: 20230213
  Receipt Date: 20230213
  Transmission Date: 20230418
  Serious: No
  Sender: FDA-Public Use
  Company Number: US-SA-2023SA039005

PATIENT
  Age: 64 Year
  Sex: Female

DRUGS (2)
  1. DRONEDARONE [Suspect]
     Active Substance: DRONEDARONE
     Dosage: UNK UNK, 1X
     Dates: start: 20230123, end: 20230123
  2. DRONEDARONE [Suspect]
     Active Substance: DRONEDARONE
     Dosage: 400 MG, Q12H
     Route: 048
     Dates: start: 20230125

REACTIONS (7)
  - Dyspnoea [Unknown]
  - Weight increased [Unknown]
  - Oedema peripheral [Unknown]
  - Blood creatinine increased [Unknown]
  - Blood urea decreased [Unknown]
  - Peripheral swelling [Unknown]
  - Eczema [Unknown]

NARRATIVE: CASE EVENT DATE: 20230201
